FAERS Safety Report 5254398-5 (Version None)
Quarter: 2007Q1

REPORT INFORMATION
  Report Type: 
  Country: None (occurrence: None)
  Receive Date: 20070302
  Receipt Date: 20070220
  Transmission Date: 20070707
  Serious: Yes (Other)
  Sender: FDA-Public Use
  Company Number: GB-ABBOTT-07P-167-0359774-00

PATIENT
  Sex: Male
  Weight: 28.6 kg

DRUGS (2)
  1. EPILIM [Suspect]
     Indication: DRUG USE FOR UNKNOWN INDICATION
     Route: 065
  2. EPILIM [Suspect]
     Route: 065

REACTIONS (2)
  - CONVULSION [None]
  - SOMNOLENCE [None]
